FAERS Safety Report 16581047 (Version 4)
Quarter: 2020Q4

REPORT INFORMATION
  Report Type: Report from Study
  Country: PL (occurrence: PL)
  Receive Date: 20190716
  Receipt Date: 20201207
  Transmission Date: 20210113
  Serious: Yes (Death, Life-Threatening)
  Sender: FDA-Public Use
  Company Number: PL-PFIZER INC-2019304420

PATIENT
  Age: 60 Year
  Sex: Female

DRUGS (11)
  1. DAUNORUBICIN HCL [Suspect]
     Active Substance: DAUNORUBICIN HYDROCHLORIDE
     Indication: ACUTE MYELOID LEUKAEMIA
     Dosage: UNK, DAILY BY CONTINUOUS INFUSION, INDUCTION
     Route: 041
     Dates: start: 20190108, end: 20190110
  2. KALIUM CHLORATUM [Concomitant]
     Active Substance: POTASSIUM CHLORIDE
     Indication: HYPOKALAEMIA
     Dosage: 3.0 G, 1X/DAY
     Route: 042
     Dates: start: 20190212, end: 20190214
  3. GLASDEGIB [Suspect]
     Active Substance: GLASDEGIB
     Indication: ACUTE MYELOID LEUKAEMIA
     Dosage: 100 MG, ONCE DAILY CONTINUOUS
     Route: 048
     Dates: start: 20190108, end: 20190211
  4. CLEMASTINUM [CLEMASTINE] [Concomitant]
     Indication: PREMEDICATION
     Dosage: 2 MG, 1X/DAY
     Route: 042
     Dates: start: 20190126, end: 20190212
  5. CLARITHROMYCIN. [Concomitant]
     Active Substance: CLARITHROMYCIN
     Indication: PNEUMONIA
     Dosage: 500 MG, 2X/DAY
     Route: 048
     Dates: start: 20190206, end: 20190214
  6. CYTARABINE. [Suspect]
     Active Substance: CYTARABINE
     Indication: ACUTE MYELOID LEUKAEMIA
     Dosage: UNK, DAILY BY CONTINOUS INFUSION, INDUCTION
     Route: 041
     Dates: start: 20190108, end: 20190115
  7. SPIRONOLACTONUM [Concomitant]
     Indication: PROPHYLAXIS
     Dosage: 50 MG, 1X/DAY
     Route: 048
     Dates: start: 20190205, end: 20190211
  8. HYDROCORTISONUM [HYDROCORTISONE] [Concomitant]
     Indication: PREMEDICATION
     Dosage: 25 MG, 4X/DAY
     Route: 042
     Dates: start: 20190212, end: 20190214
  9. AMPHOTERICIN [Concomitant]
     Active Substance: AMPHOTERICIN B
     Indication: ANTIFUNGAL PROPHYLAXIS
     Dosage: 200 MG, 1X/DAY
     Route: 042
     Dates: start: 20190126, end: 20190212
  10. CEFOPERAZONE [Concomitant]
     Active Substance: CEFOPERAZONE
     Indication: PYREXIA
     Dosage: 2 G, 3X/DAY
     Dates: start: 20190110, end: 20190111
  11. OSELTAMIVIR [Concomitant]
     Active Substance: OSELTAMIVIR
     Indication: PROPHYLAXIS
     Dosage: 75 MG, 1X/DAY
     Route: 048
     Dates: start: 20190207, end: 20190211

REACTIONS (1)
  - Septic shock [Not Recovered/Not Resolved]

NARRATIVE: CASE EVENT DATE: 20190211
